FAERS Safety Report 11163795 (Version 1)
Quarter: 2015Q2

REPORT INFORMATION
  Report Type: Other
  Country: DK (occurrence: DK)
  Receive Date: 20150604
  Receipt Date: 20150604
  Transmission Date: 20150821
  Serious: Yes (Hospitalization, Other)
  Sender: FDA-Public Use
  Company Number: DK-ACTELION-A-CH2015-118547

PATIENT
  Age: 2 Year
  Sex: Male

DRUGS (1)
  1. TRACLEER [Suspect]
     Active Substance: BOSENTAN\BOSENTAN MONOHYDRATE
     Indication: PULMONARY ARTERIAL HYPERTENSION
     Route: 048

REACTIONS (16)
  - Pneumonia [Unknown]
  - Condition aggravated [Recovering/Resolving]
  - Oxygen saturation decreased [Recovering/Resolving]
  - Systemic-pulmonary artery shunt [Unknown]
  - Cardiac failure [Unknown]
  - Ventricular septal defect repair [Unknown]
  - Decreased appetite [Recovering/Resolving]
  - Concomitant disease progression [Recovering/Resolving]
  - Haemoglobin decreased [Recovering/Resolving]
  - Pulmonary artery banding [Recovered/Resolved]
  - Sepsis [Unknown]
  - Vomiting [Unknown]
  - Pulmonary arterial hypertension [Recovering/Resolving]
  - Biopsy lung normal [Unknown]
  - Nausea [Unknown]
  - N-terminal prohormone brain natriuretic peptide increased [Recovering/Resolving]
